FAERS Safety Report 20208865 (Version 1)
Quarter: 2021Q4

REPORT INFORMATION
  Report Type: Spontaneous
  Country: BR (occurrence: BR)
  Receive Date: 20211220
  Receipt Date: 20211220
  Transmission Date: 20220304
  Serious: Yes (Other)
  Sender: FDA-Public Use
  Company Number: BR-AMERICAN REGENT INC-2021003282

PATIENT
  Sex: Female
  Weight: 65 kg

DRUGS (6)
  1. VENOFER [Suspect]
     Active Substance: IRON SUCROSE
     Indication: Haemodialysis
     Dosage: 100 MILLIGRAM
     Route: 042
     Dates: start: 2018, end: 202109
  2. VENOFER [Suspect]
     Active Substance: IRON SUCROSE
     Indication: Haemoglobin decreased
  3. VENOFER [Suspect]
     Active Substance: IRON SUCROSE
     Indication: Blood iron decreased
  4. VENOFER [Suspect]
     Active Substance: IRON SUCROSE
     Indication: Malabsorption
  5. LEVOTHYROXINE SODIUM [Concomitant]
     Active Substance: LEVOTHYROXINE SODIUM
     Indication: Hypothyroidism
     Dosage: 88 MILLIGRAM
     Route: 065
  6. HEMAX [ERYTHROPOIETIN] [Concomitant]
     Indication: Product used for unknown indication
     Dosage: UNK
     Route: 065

REACTIONS (6)
  - Haemorrhage [Unknown]
  - Renal disorder [Unknown]
  - Heavy menstrual bleeding [Unknown]
  - Leiomyoma [Unknown]
  - Product availability issue [Unknown]
  - Treatment noncompliance [Unknown]

NARRATIVE: CASE EVENT DATE: 20210101
